FAERS Safety Report 6095341-9 (Version None)
Quarter: 2009Q1

REPORT INFORMATION
  Report Type: 
  Country: None (occurrence: None)
  Receive Date: 20090227
  Receipt Date: 20080411
  Transmission Date: 20090719
  Serious: No
  Sender: FDA-Public Use
  Company Number: A0714621A

PATIENT
  Age: 34 Year
  Sex: Female

DRUGS (3)
  1. LAMICTAL [Suspect]
     Indication: BIPOLAR DISORDER
     Dosage: 100MG TWICE PER DAY
     Route: 048
     Dates: start: 20071001, end: 20080201
  2. SEROQUEL [Concomitant]
     Dosage: 300MG AT NIGHT
     Route: 048
     Dates: start: 20050101
  3. ZOLOFT [Concomitant]
     Dosage: 50MG PER DAY
     Route: 048
     Dates: start: 20000101

REACTIONS (1)
  - ALOPECIA [None]
